FAERS Safety Report 9776233 (Version 1)
Quarter: 2013Q4

REPORT INFORMATION
  Report Type: Report from Study
  Country: GR (occurrence: GR)
  Receive Date: 20131220
  Receipt Date: 20131220
  Transmission Date: 20140711
  Serious: Yes (Hospitalization)
  Sender: FDA-Public Use
  Company Number: GR-TEVA-451006ISR

PATIENT
  Age: 23 Year
  Sex: Female
  Weight: 40 kg

DRUGS (1)
  1. COPAXONE [Suspect]
     Indication: MULTIPLE SCLEROSIS
     Dosage: 20 MG/ML DAILY;
     Route: 058
     Dates: start: 20121201

REACTIONS (1)
  - Vertigo positional [Recovered/Resolved]
